FAERS Safety Report 23047899 (Version 1)
Quarter: 2023Q4

REPORT INFORMATION
  Report Type: Spontaneous
  Country: RU (occurrence: RU)
  Receive Date: 20231010
  Receipt Date: 20231010
  Transmission Date: 20240110
  Serious: Yes (Other)
  Sender: FDA-Public Use
  Company Number: None

PATIENT
  Age: 18 Year
  Sex: Male
  Weight: 65 kg

DRUGS (1)
  1. FIASP [Suspect]
     Active Substance: INSULIN ASPART
     Indication: Type 1 diabetes mellitus
     Dosage: 20 IU 4-5 TIMES PER DAY
     Route: 058
     Dates: start: 20230901, end: 20230905

REACTIONS (2)
  - Diabetic ketoacidosis [Recovering/Resolving]
  - Injection site inflammation [Unknown]

NARRATIVE: CASE EVENT DATE: 20230901
